FAERS Safety Report 8788270 (Version 1)
Quarter: 2012Q4

REPORT INFORMATION
  Report Type: 
  Country: US (occurrence: US)
  Receive Date: 20120914
  Receipt Date: 20120914
  Transmission Date: 20130627
  Serious: No
  Sender: FDA-Public Use
  Company Number: US-VERTEX PHARMACEUTICAL INC.-AE-2012-011858

PATIENT
  Sex: Female
  Weight: 77.27 kg

DRUGS (8)
  1. INCIVEK [Suspect]
     Indication: HEPATITIS C
     Route: 048
     Dates: start: 20120523
  2. PEGINTRON [Concomitant]
     Indication: HEPATITIS C
     Route: 058
     Dates: start: 20120523
  3. REBETOL [Concomitant]
     Indication: HEPATITIS C
     Route: 048
     Dates: start: 20120523
  4. SYNTHROID [Concomitant]
     Indication: THYROID DISORDER
     Route: 048
  5. PROZAC [Concomitant]
     Indication: DEPRESSION
     Route: 048
  6. IRON [Concomitant]
     Indication: ANAEMIA
     Route: 048
  7. VALIUM [Concomitant]
     Indication: ANXIETY
  8. MULTIPLE VITAMIN [Concomitant]
     Route: 048

REACTIONS (5)
  - Dyspnoea [Not Recovered/Not Resolved]
  - Thyroid disorder [Not Recovered/Not Resolved]
  - Anxiety [Not Recovered/Not Resolved]
  - Oral candidiasis [Not Recovered/Not Resolved]
  - Anaemia [Not Recovered/Not Resolved]
